FAERS Safety Report 8031119 (Version 4)
Quarter: 2012Q4

REPORT INFORMATION
  Report Type: Report from Study
  Country: FR (occurrence: FR)
  Receive Date: 20110712
  Receipt Date: 20121003
  Transmission Date: 20130627
  Serious: Yes (Hospitalization, Other)
  Sender: FDA-Public Use
  Company Number: FR-ROCHE-779085

PATIENT
  Age: 54 Year
  Sex: Male

DRUGS (7)
  1. PEGASYS [Suspect]
     Indication: HEPATITIS C
     Route: 058
  2. PEGASYS [Suspect]
     Route: 058
  3. COPEGUS [Suspect]
     Indication: HEPATITIS C
     Route: 048
  4. COPEGUS [Suspect]
     Dosage: DOSE; 6 TABLETS/ DAY
     Route: 048
  5. COPEGUS [Suspect]
     Route: 048
  6. DOLIPRANE [Concomitant]
  7. VITAMIN D [Concomitant]

REACTIONS (3)
  - Pericarditis [Recovered/Resolved]
  - Lung disorder [Recovered/Resolved]
  - Sarcoidosis [Not Recovered/Not Resolved]
